FAERS Safety Report 6675703-9 (Version None)
Quarter: 2010Q2

REPORT INFORMATION
  Report Type: 
  Country: None (occurrence: None)
  Receive Date: 20100409
  Receipt Date: 20100401
  Transmission Date: 20101027
  Serious: Yes (Death)
  Sender: FDA-Public Use
  Company Number: US-ABBOTT-09P-163-0608213-00

PATIENT
  Sex: Female
  Weight: 17.57 kg

DRUGS (8)
  1. ULTANE [Suspect]
     Indication: SURGERY
     Route: 055
     Dates: start: 20091103, end: 20091103
  2. ULTANE [Suspect]
     Indication: TOOTH REPAIR
  3. ULTANE [Suspect]
     Indication: DENTAL CARIES
  4. PROPOFOL [Suspect]
     Indication: SURGERY
     Route: 042
     Dates: start: 20091103, end: 20091103
  5. PROPOFOL [Suspect]
     Indication: TOOTH REPAIR
  6. PROPOFOL [Suspect]
     Indication: DENTAL CARIES
  7. ANCEF [Concomitant]
     Indication: PREMEDICATION
     Dosage: UNKNOWN
     Route: 065
     Dates: start: 20091103, end: 20091103
  8. FENTANYL-100 [Concomitant]
     Indication: PREMEDICATION
     Dosage: UNKNOWN
     Route: 065
     Dates: start: 20091103, end: 20091103

REACTIONS (1)
  - HYPERTHERMIA MALIGNANT [None]
